FAERS Safety Report 5044225-3 (Version None)
Quarter: 2006Q3

REPORT INFORMATION
  Report Type: 
  Country: None (occurrence: None)
  Receive Date: 20060706
  Receipt Date: 20060628
  Transmission Date: 20061208
  Serious: Yes (Other)
  Sender: FDA-Public Use
  Company Number: US-ROCHE-453494

PATIENT
  Age: 41 Year
  Sex: Female

DRUGS (3)
  1. PEGASYS [Suspect]
     Dosage: ROUTE REPORTED AS INJECTABLE.
     Route: 050
     Dates: start: 20060516
  2. RIBAVIRIN [Suspect]
     Dosage: DAILY.
     Route: 048
     Dates: start: 20060516
  3. XANAX [Concomitant]
     Indication: ANXIETY

REACTIONS (6)
  - ANAEMIA [None]
  - HEADACHE [None]
  - HYPERHIDROSIS [None]
  - MENORRHAGIA [None]
  - MUSCLE SPASMS [None]
  - THROMBOSIS [None]
